FAERS Safety Report 16134779 (Version 1)
Quarter: 2019Q1

REPORT INFORMATION
  Report Type: Spontaneous
  Country: US (occurrence: US)
  Receive Date: 20190329
  Receipt Date: 20190329
  Transmission Date: 20190418
  Serious: No
  Sender: FDA-Public Use
  Company Number: US-APOTEX-2019AP009232

PATIENT
  Sex: Male
  Weight: 81.65 kg

DRUGS (1)
  1. NICOTINE. [Suspect]
     Active Substance: NICOTINE
     Indication: SMOKING CESSATION THERAPY
     Dosage: 14 MG, OVER 24 HOURS
     Route: 062
     Dates: start: 2012

REACTIONS (2)
  - Nicotine dependence [Unknown]
  - Withdrawal syndrome [Unknown]
